FAERS Safety Report 6371671-8 (Version None)
Quarter: 2009Q3

REPORT INFORMATION
  Report Type: 
  Country: None (occurrence: None)
  Receive Date: 20090923
  Receipt Date: 20080916
  Transmission Date: 20100115
  Serious: No
  Sender: FDA-Public Use
  Company Number: US-ASTRAZENECA-2008UW11359

PATIENT
  Age: 12186 Day
  Sex: Female
  Weight: 83.9 kg

DRUGS (6)
  1. SEROQUEL [Suspect]
     Indication: DEPRESSION
     Dosage: 25 MG AND 50 MG
     Route: 048
     Dates: start: 20040519, end: 20060314
  2. WELLBUTRIN [Concomitant]
     Dosage: 100 MG AND 150 MG
  3. PROZAC [Concomitant]
     Dosage: 20 MG AND 40 MG
  4. REMERON [Concomitant]
  5. CYMBALTA [Concomitant]
  6. ZOLOFT [Concomitant]
     Dates: start: 20031001, end: 20031101

REACTIONS (4)
  - DIABETES MELLITUS [None]
  - HYPERSENSITIVITY [None]
  - KIDNEY INFECTION [None]
  - SOMNOLENCE [None]
